FAERS Safety Report 4903957-5 (Version None)
Quarter: 2006Q1

REPORT INFORMATION
  Report Type: 
  Country: None (occurrence: None)
  Receive Date: 20060208
  Receipt Date: 20050802
  Transmission Date: 20060701
  Serious: No
  Sender: FDA-Public Use
  Company Number: US-GLAXOSMITHKLINE-A0568633A

PATIENT
  Sex: Female

DRUGS (3)
  1. PAXIL [Suspect]
     Indication: OBSESSIVE-COMPULSIVE DISORDER
     Dosage: 10MG PER DAY
     Route: 048
     Dates: start: 20000701, end: 20001001
  2. PERCOCET [Concomitant]
  3. DIAZEPAM [Concomitant]

REACTIONS (1)
  - NAUSEA [None]
